FAERS Safety Report 17772463 (Version 5)
Quarter: 2020Q2

REPORT INFORMATION
  Report Type: Spontaneous
  Country: DE (occurrence: DE)
  Receive Date: 20200512
  Receipt Date: 20200529
  Transmission Date: 20200714
  Serious: Yes (Life-Threatening, Hospitalization, Other)
  Sender: FDA-Public Use
  Company Number: NVSC2020DE087924

PATIENT
  Age: 63 Year
  Sex: Female
  Weight: 93 kg

DRUGS (11)
  1. FOLIC ACID. [Concomitant]
     Active Substance: FOLIC ACID
     Indication: RHEUMATOID ARTHRITIS
     Dosage: 5 MG ON THE DAY AFTER THE METHOTREXATE ADMINISTRATION FOR 8 YEARS
     Route: 048
  2. METAMIZOLE [Concomitant]
     Active Substance: METAMIZOLE
     Indication: ANALGESIC THERAPY
     Dosage: 1 DF
     Route: 065
  3. METAMIZOLE [Concomitant]
     Active Substance: METAMIZOLE
     Indication: PAIN
  4. SIMVASTATIN. [Concomitant]
     Active Substance: SIMVASTATIN
     Indication: HYPERLIPIDAEMIA
     Dosage: 20 MG, QD
     Route: 048
  5. SIMVASTATIN. [Concomitant]
     Active Substance: SIMVASTATIN
     Indication: DYSLIPIDAEMIA
  6. IRON [Concomitant]
     Active Substance: IRON
     Indication: MINERAL SUPPLEMENTATION
     Dosage: UNK
     Route: 065
  7. LEFLUNOMIDE. [Suspect]
     Active Substance: LEFLUNOMIDE
     Indication: RHEUMATOID ARTHRITIS
     Dosage: 20 MG, QD FOR 6 YEARS
     Route: 048
     Dates: start: 2014
  8. FUROSEMIDE. [Concomitant]
     Active Substance: FUROSEMIDE
     Indication: PRODUCT USED FOR UNKNOWN INDICATION
     Dosage: 40 MG, QD FOR 4 WEEKS
     Route: 048
  9. METHOTREXATE. [Suspect]
     Active Substance: METHOTREXATE
     Indication: RHEUMATOID ARTHRITIS
     Dosage: 15 MG, QW
     Route: 048
     Dates: start: 2012
  10. PANTOPRAZOLE [Concomitant]
     Active Substance: PANTOPRAZOLE
     Indication: CHRONIC GASTRITIS
     Dosage: 40 MG, BID
     Route: 065
  11. PANTOPRAZOLE [Concomitant]
     Active Substance: PANTOPRAZOLE
     Dosage: 40 MG, QD
     Route: 048

REACTIONS (27)
  - Metabolic alkalosis [Recovered/Resolved]
  - Skin haemorrhage [Unknown]
  - Hepatic cirrhosis [Recovered/Resolved]
  - Immunosuppressant drug level increased [Unknown]
  - Muscular weakness [Recovered/Resolved]
  - Overdose [Recovered/Resolved]
  - Skin discolouration [Unknown]
  - Oedema peripheral [Recovered/Resolved]
  - Hypoalbuminaemia [Recovered/Resolved]
  - Erythema [Recovered/Resolved]
  - Acute hepatic failure [Recovered/Resolved]
  - Thrombotic microangiopathy [Recovered/Resolved]
  - Dyspnoea [Recovered/Resolved]
  - Anaemia [Recovered/Resolved]
  - Toxicity to various agents [Recovered/Resolved]
  - Ascites [Recovered/Resolved]
  - Thrombocytopenia [Recovered/Resolved]
  - Sinus tachycardia [Recovered/Resolved]
  - Drug interaction [Unknown]
  - Petechiae [Recovered/Resolved]
  - Oliguria [Recovered/Resolved]
  - Drug-induced liver injury [Recovered/Resolved]
  - Hypovolaemia [Recovered/Resolved]
  - Hypokalaemia [Recovered/Resolved]
  - Respiratory alkalosis [Recovered/Resolved]
  - Acute kidney injury [Recovered/Resolved]
  - Coombs negative haemolytic anaemia [Recovered/Resolved]
